FAERS Safety Report 8818195 (Version 2)
Quarter: 2012Q4

REPORT INFORMATION
  Report Type: 
  Country: US (occurrence: US)
  Receive Date: 20121001
  Receipt Date: 20121025
  Transmission Date: 20130627
  Serious: Yes (Other)
  Sender: FDA-Public Use
  Company Number: US-VIROPHARMA INCORPORATED-20120920CINRY3401

PATIENT
  Age: 26 Year
  Sex: Female

DRUGS (3)
  1. CINRYZE (C1 ESTERASE INHIBITOR (HUMAN)) [Suspect]
     Indication: HEREDITARY ANGIOEDEMA
     Dates: start: 20101116, end: 201103
  2. CINRYZE (C1 ESTERASE INHIBITOR (HUMAN)) [Suspect]
     Dosage: unknown
     Dates: start: 201110, end: 201201
  3. CINRYZE (C1 ESTERASE INHIBITOR (HUMAN)) [Suspect]
     Dosage: unknown
     Dates: start: 201206

REACTIONS (5)
  - Papillary thyroid cancer [Recovered/Resolved]
  - Thyroidectomy [Recovered/Resolved]
  - Therapy regimen changed [Not Recovered/Not Resolved]
  - Hypothalamo-pituitary disorder [Not Recovered/Not Resolved]
  - Pituitary tumour [Not Recovered/Not Resolved]
